FAERS Safety Report 10503183 (Version 54)
Quarter: 2019Q3

REPORT INFORMATION
  Report Type: Report from Study
  Country: CA (occurrence: CA)
  Receive Date: 20141007
  Receipt Date: 20190930
  Transmission Date: 20191004
  Serious: Yes (Other)
  Sender: FDA-Public Use
  Company Number: CA-ROCHE-1446929

PATIENT
  Age: 64 Year
  Sex: Female
  Weight: 77 kg

DRUGS (15)
  1. ACTEMRA [Suspect]
     Active Substance: TOCILIZUMAB
     Indication: RHEUMATOID ARTHRITIS
     Route: 042
     Dates: start: 20140805, end: 20160711
  2. METHOTREXATE. [Concomitant]
     Active Substance: METHOTREXATE
  3. ACTEMRA [Suspect]
     Active Substance: TOCILIZUMAB
     Route: 042
     Dates: start: 20171030
  4. ESOMEPRAZOLE. [Concomitant]
     Active Substance: ESOMEPRAZOLE MAGNESIUM
     Dosage: SINCE 10 YEAR
     Route: 065
  5. ACTEMRA [Suspect]
     Active Substance: TOCILIZUMAB
     Route: 042
     Dates: start: 20180223
  6. LIPITOR [Suspect]
     Active Substance: ATORVASTATIN CALCIUM
     Indication: BLOOD CHOLESTEROL INCREASED
     Route: 048
  7. DILTIAZEM. [Suspect]
     Active Substance: DILTIAZEM
     Indication: PRODUCT USED FOR UNKNOWN INDICATION
     Route: 065
  8. ACTEMRA [Suspect]
     Active Substance: TOCILIZUMAB
     Route: 042
     Dates: start: 20171005, end: 20181106
  9. LIPITOR [Suspect]
     Active Substance: ATORVASTATIN CALCIUM
     Route: 048
  10. FOLIC ACID. [Concomitant]
     Active Substance: FOLIC ACID
  11. OMEPRAZOL [OMEPRAZOLE] [Concomitant]
     Active Substance: OMEPRAZOLE
     Route: 065
  12. ACTEMRA [Suspect]
     Active Substance: TOCILIZUMAB
     Route: 042
     Dates: start: 20160815, end: 20170817
  13. ACTEMRA [Suspect]
     Active Substance: TOCILIZUMAB
     Dosage: BUT GIVEN 600 MG
     Route: 042
     Dates: start: 20171030
  14. ACTEMRA [Suspect]
     Active Substance: TOCILIZUMAB
     Route: 042
     Dates: start: 20181217
  15. LYRICA [Concomitant]
     Active Substance: PREGABALIN

REACTIONS (60)
  - Blood cholesterol increased [Recovering/Resolving]
  - Tooth disorder [Unknown]
  - Hypertension [Unknown]
  - Arthralgia [Not Recovered/Not Resolved]
  - Skin swelling [Unknown]
  - Oesophageal pain [Unknown]
  - Peripheral swelling [Unknown]
  - Infusion related reaction [Unknown]
  - Fall [Recovering/Resolving]
  - Joint swelling [Recovering/Resolving]
  - Sinusitis [Recovering/Resolving]
  - Bladder dysfunction [Unknown]
  - Blood pressure increased [Unknown]
  - Hypotension [Unknown]
  - Bronchitis [Recovered/Resolved]
  - Seasonal allergy [Recovered/Resolved]
  - Back pain [Not Recovered/Not Resolved]
  - Muscle spasms [Unknown]
  - Blood pressure increased [Unknown]
  - Body temperature decreased [Unknown]
  - Poor venous access [Unknown]
  - Dry eye [Unknown]
  - Motion sickness [Unknown]
  - Fatigue [Unknown]
  - Cough [Unknown]
  - Weight increased [Unknown]
  - Vertigo [Recovered/Resolved]
  - Diarrhoea [Recovering/Resolving]
  - Off label use [Unknown]
  - Therapeutic product effect decreased [Unknown]
  - Nasopharyngitis [Unknown]
  - Nasopharyngitis [Recovered/Resolved]
  - Photophobia [Not Recovered/Not Resolved]
  - Dizziness [Not Recovered/Not Resolved]
  - Precancerous cells present [Recovered/Resolved]
  - Tooth fracture [Unknown]
  - Osteomalacia [Unknown]
  - Heart rate increased [Unknown]
  - Pain in extremity [Not Recovered/Not Resolved]
  - Oral discomfort [Unknown]
  - Swelling [Unknown]
  - Muscular weakness [Unknown]
  - Body temperature decreased [Unknown]
  - Cough [Not Recovered/Not Resolved]
  - Asthma [Unknown]
  - Oropharyngeal pain [Recovered/Resolved]
  - Intentional product use issue [Unknown]
  - Eczema [Not Recovered/Not Resolved]
  - Gastrooesophageal reflux disease [Not Recovered/Not Resolved]
  - Hypotension [Unknown]
  - Oral herpes [Recovering/Resolving]
  - Incorrect dose administered [Unknown]
  - Bone loss [Unknown]
  - Hypotension [Unknown]
  - Pain [Unknown]
  - Oxygen saturation decreased [Unknown]
  - Weight decreased [Unknown]
  - Chest pain [Unknown]
  - Aphonia [Unknown]
  - Vertigo [Recovered/Resolved]

NARRATIVE: CASE EVENT DATE: 201409
